FAERS Safety Report 5362923-9 (Version None)
Quarter: 2007Q2

REPORT INFORMATION
  Report Type: 
  Country: None (occurrence: None)
  Receive Date: 20070530
  Receipt Date: 20070328
  Transmission Date: 20071010
  Serious: No
  Sender: FDA-Public Use
  Company Number: 2007PV032585

PATIENT
  Age: 45 Year
  Sex: Male

DRUGS (10)
  1. BYETTA [Suspect]
     Indication: DIABETES MELLITUS NON-INSULIN-DEPENDENT
     Dosage: 5 MCG;BID;SC
     Route: 058
     Dates: start: 20070321
  2. ACTOS [Concomitant]
  3. METFORMIN HCL [Concomitant]
  4. ZETIA [Concomitant]
  5. ABILIFY [Concomitant]
  6. LIPITOR [Concomitant]
  7. TOPAMAX [Concomitant]
  8. SEROQUEL [Concomitant]
  9. LORAZEPAM [Concomitant]
  10. FOLIC ACID [Concomitant]

REACTIONS (1)
  - INSOMNIA [None]
